FAERS Safety Report 19116383 (Version 3)
Quarter: 2021Q3

REPORT INFORMATION
  Report Type: Report from Study
  Country: DE (occurrence: DE)
  Receive Date: 20210409
  Receipt Date: 20210907
  Transmission Date: 20211014
  Serious: Yes (Hospitalization, Other)
  Sender: FDA-Public Use
  Company Number: DE-MYLANLABS-2021M1020840

PATIENT
  Age: 79 Year
  Sex: Male
  Weight: 76 kg

DRUGS (8)
  1. ATEZOLIZUMAB. [Suspect]
     Active Substance: ATEZOLIZUMAB
     Indication: NON-SMALL CELL LUNG CANCER
     Dosage: 1200 MILLIGRAM, 3XW
     Route: 041
     Dates: start: 20190808
  2. XIPAMID [Concomitant]
     Active Substance: XIPAMIDE
     Indication: HYPERTENSION
     Dosage: 10 MILLIGRAM, QD
     Route: 048
  3. TILIDIN [Concomitant]
     Active Substance: NALOXONE HYDROCHLORIDE\TILIDINE HYDROCHLORIDE
     Indication: NON-SMALL CELL LUNG CANCER METASTATIC
     Dosage: UNK
     Route: 048
     Dates: start: 20200129
  4. ASPIRIN. [Concomitant]
     Active Substance: ASPIRIN
     Indication: PROPHYLAXIS
     Dosage: 100 MILLIGRAM, QD
     Route: 048
  5. CANDESARTAN CILEXETIL. [Concomitant]
     Active Substance: CANDESARTAN CILEXETIL
     Indication: HYPERTENSION
     Dosage: 4 MILLIGRAM, QD
     Route: 048
  6. XIPAMID [Concomitant]
     Active Substance: XIPAMIDE
     Dosage: 10 MILLIGRAM (0.2 /DAY)
     Route: 048
  7. TILIDIN [Concomitant]
     Active Substance: NALOXONE HYDROCHLORIDE\TILIDINE HYDROCHLORIDE
     Dosage: 100 MILLIGRAM
     Route: 048
     Dates: start: 20200629
  8. PREGABALIN. [Suspect]
     Active Substance: PREGABALIN
     Indication: TUMOUR PAIN
     Dosage: 25 MILLIGRAM(0.5/DAY)
     Route: 048
     Dates: start: 20200603, end: 20200629

REACTIONS (10)
  - Intra-abdominal haematoma [Recovered/Resolved]
  - Arthralgia [Recovering/Resolving]
  - Cardiac failure [Not Recovered/Not Resolved]
  - Hypothyroidism [Not Recovered/Not Resolved]
  - Nausea [Recovered/Resolved]
  - Lung disorder [Recovered/Resolved]
  - Pleural effusion [Not Recovered/Not Resolved]
  - Oedema peripheral [Recovered/Resolved]
  - Insomnia [Not Recovered/Not Resolved]
  - Obstruction gastric [Recovering/Resolving]

NARRATIVE: CASE EVENT DATE: 20200415
